FAERS Safety Report 8455212-7 (Version None)
Quarter: 2012Q2

REPORT INFORMATION
  Report Type: 
  Country: None (occurrence: None)
  Receive Date: 20120614
  Receipt Date: 20120531
  Transmission Date: 20120825
  Serious: Yes (Life-Threatening, Hospitalization)
  Sender: FDA-Public Use
  Company Number: 20120317

PATIENT
  Age: 83 Year
  Sex: Female
  Weight: 75.2971 kg

DRUGS (11)
  1. OMEPRAZOLE [Concomitant]
  2. SODIUM CHLORIDE 0.9% [Suspect]
     Indication: ANAEMIA
     Dosage: 250 ML (ONE DOSE) INTRAVENOUS
     Route: 042
     Dates: start: 20120420, end: 20120420
  3. BENICAR .20 MG (2 TABLETS DAILY) [Concomitant]
  4. TEGRETOL .200 MG TWICE A DAY [Concomitant]
  5. CLONIDINE .1 MG (1/2 TAB TWICE A DAY) [Concomitant]
  6. OSTEOBIFLEX .2 TABLETS A DAY [Concomitant]
  7. VENOFER [Suspect]
     Indication: IRON DEFICIENCY ANAEMIA
     Dosage: 500 MG (25 ML) 1 DOSE INTRAVENOUS
     Route: 042
     Dates: start: 20120420, end: 20120420
  8. FISH OIL .20 MG DAILY [Concomitant]
  9. PREMARIN .625 MG DAILY [Concomitant]
  10. ASPIRIN [Concomitant]
  11. MAGOXIDE .400 MG DAILY [Concomitant]

REACTIONS (14)
  - BLOOD PRESSURE INCREASED [None]
  - SINUS TACHYCARDIA [None]
  - FEELING ABNORMAL [None]
  - FATIGUE [None]
  - UNRESPONSIVE TO STIMULI [None]
  - CARDIAC PACEMAKER INSERTION [None]
  - PAIN [None]
  - BLOOD GLUCOSE INCREASED [None]
  - SOMNOLENCE [None]
  - SINUS BRADYCARDIA [None]
  - CARDIAC ARREST [None]
  - PARAESTHESIA [None]
  - OEDEMA PERIPHERAL [None]
  - DIZZINESS [None]
